FAERS Safety Report 6784876-9 (Version None)
Quarter: 2010Q2

REPORT INFORMATION
  Report Type: 
  Country: None (occurrence: None)
  Receive Date: 20100618
  Receipt Date: 20100607
  Transmission Date: 20101027
  Serious: No
  Sender: FDA-Public Use
  Company Number: 7001285

PATIENT
  Age: 33 Year
  Sex: Female
  Weight: 61 kg

DRUGS (29)
  1. REBIF [Suspect]
     Indication: MULTIPLE SCLEROSIS
     Dosage: 44 MCG, 3 IN 1 WK, SUBCUTANEOUS : 22 MCG, 3 IN 1 WK, SUBCUTANEOUS
     Route: 058
     Dates: start: 20080204, end: 20081001
  2. REBIF [Suspect]
     Indication: MULTIPLE SCLEROSIS
     Dosage: 44 MCG, 3 IN 1 WK, SUBCUTANEOUS : 22 MCG, 3 IN 1 WK, SUBCUTANEOUS
     Route: 058
     Dates: start: 20081001
  3. DEPO-PROVERA [Concomitant]
  4. ADDERALL XR 10 [Concomitant]
  5. VALIUM [Concomitant]
  6. EFFEXOR [Concomitant]
  7. CELEXA [Concomitant]
  8. EQUETRO [Concomitant]
  9. PROVIGIL [Concomitant]
  10. ZANAFLEX [Concomitant]
  11. BACLOFEN [Concomitant]
  12. RESTORIL [Concomitant]
  13. NEXIUM IV [Concomitant]
  14. TRAZODONE HYDROCHLORIDE [Concomitant]
  15. TOPAMAX [Concomitant]
  16. RELPAX [Concomitant]
  17. SINGULAIR [Concomitant]
  18. NASONEX [Concomitant]
  19. DUONEB [Concomitant]
  20. PULMICORT [Concomitant]
  21. ALLEGRA [Concomitant]
  22. EPIPEN [Concomitant]
  23. EXEDRIN MIGRAINE (THOMAPYRIN N) [Concomitant]
  24. PERCOCET [Concomitant]
  25. ACETAMINOPHEN [Concomitant]
  26. KLOR-CON [Concomitant]
  27. B-COMPLEX (B-KOMPLEX) [Concomitant]
  28. CITRACAL WITH VITAMIN D (CITRACAL + D) [Concomitant]
  29. NULEV (HYOSCAMINE SULFATE) [Concomitant]

REACTIONS (10)
  - BLOOD CREATINE PHOSPHOKINASE INCREASED [None]
  - FALL [None]
  - HEPATIC ENZYME ABNORMAL [None]
  - HEPATOTOXICITY [None]
  - HYPOAESTHESIA [None]
  - LIMB INJURY [None]
  - MULTIPLE SCLEROSIS RELAPSE [None]
  - MUSCULOSKELETAL PAIN [None]
  - PAIN IN EXTREMITY [None]
  - UPPER LIMB FRACTURE [None]
